FAERS Safety Report 8355073-0 (Version None)
Quarter: 2012Q2

REPORT INFORMATION
  Report Type: 
  Country: None (occurrence: None)
  Receive Date: 20120511
  Receipt Date: 20120430
  Transmission Date: 20120825
  Serious: Yes (Hospitalization)
  Sender: FDA-Public Use
  Company Number: FR-ELI_LILLY_AND_COMPANY-FR201204009863

PATIENT
  Sex: Male

DRUGS (10)
  1. SIMVASTATIN [Concomitant]
  2. ALIMTA [Suspect]
     Indication: LUNG ADENOCARCINOMA
     Dosage: UNK
     Route: 042
     Dates: start: 20111021, end: 20111110
  3. FOLIC ACID [Concomitant]
  4. LANTUS [Concomitant]
  5. VITAMIN B-12 [Concomitant]
  6. SPASFON [Concomitant]
  7. NEXIUM [Concomitant]
  8. FERROUS SULFATE TAB [Concomitant]
  9. LOVENOX [Concomitant]
  10. HUMALOG [Concomitant]

REACTIONS (4)
  - DYSPNOEA [None]
  - APLASIA [None]
  - INFLAMMATION [None]
  - RASH [None]
